FAERS Safety Report 13320034 (Version 2)
Quarter: 2017Q1

REPORT INFORMATION
  Report Type: Spontaneous
  Country: BE (occurrence: BE)
  Receive Date: 20170310
  Receipt Date: 20170316
  Transmission Date: 20170428
  Serious: No
  Sender: FDA-Public Use
  Company Number: BE-ELI_LILLY_AND_COMPANY-BE201703002978

PATIENT
  Age: 54 Year
  Sex: Male

DRUGS (2)
  1. CIALIS [Suspect]
     Active Substance: TADALAFIL
     Indication: ERECTILE DYSFUNCTION
  2. SYMORON [Concomitant]
     Indication: PAIN
     Dosage: 45 MG, UNKNOWN
     Route: 065

REACTIONS (1)
  - Blood urine present [Unknown]
